FAERS Safety Report 9785628 (Version 1)
Quarter: 2013Q4

REPORT INFORMATION
  Report Type: Spontaneous
  Country: FI (occurrence: None)
  Receive Date: 20131224
  Receipt Date: 20131224
  Transmission Date: 20140711
  Serious: Yes (Life-Threatening)
  Sender: FDA-Public Use
  Company Number: 2087547

PATIENT
  Age: 35 Year
  Sex: Female

DRUGS (9)
  1. DEXMEDETOMIDINE HYDROCHLORIDE [Suspect]
     Indication: SEDATION
     Dosage: 12 ML MILLILITRE(S) (1 HOUR) INTRAVENOUS (NOT OTHERWISE SPECIFIED)
     Dates: start: 20131203, end: 20131203
  2. MIDAZOLAM [Concomitant]
  3. FENTANYL [Concomitant]
  4. PROPOFOL [Concomitant]
  5. ERYTHROMYCINE [Concomitant]
  6. PANTOPRAZOL [Concomitant]
  7. FUROSEMIDE [Concomitant]
  8. NOREPINEPHRINE [Concomitant]
  9. CEFUROXIME [Concomitant]

REACTIONS (5)
  - Torsade de pointes [None]
  - Electrocardiogram QT prolonged [None]
  - Atrioventricular block complete [None]
  - Ventricular extrasystoles [None]
  - Ventricular tachycardia [None]
